FAERS Safety Report 14162729 (Version 5)
Quarter: 2018Q1

REPORT INFORMATION
  Report Type: Spontaneous
  Country: FR (occurrence: FR)
  Receive Date: 20171106
  Receipt Date: 20180328
  Transmission Date: 20180508
  Serious: Yes (Other)
  Sender: FDA-Public Use
  Company Number: FR-MERCK KGAA-2033348

PATIENT
  Age: 52 Year
  Sex: Female
  Weight: 73 kg

DRUGS (24)
  1. NOVOTHYROX [Suspect]
     Active Substance: LEVOTHYROXINE SODIUM
     Indication: HYPOTHYROIDISM
     Dates: start: 201703, end: 20180110
  2. NOVOTHYROX [Suspect]
     Active Substance: LEVOTHYROXINE SODIUM
  3. THERALENE [Concomitant]
     Active Substance: TRIMEPRAZINE
     Dates: start: 20170801
  4. SPASFON LYOC [Concomitant]
     Active Substance: PHLOROGLUCINOL
     Dates: start: 20170915
  5. MONAZOL [Concomitant]
     Active Substance: SERTACONAZOLE NITRATE
     Dates: start: 20170905
  6. LACTULOSE. [Concomitant]
     Active Substance: LACTULOSE
     Dates: start: 20170801
  7. VENTOLINE [Concomitant]
     Active Substance: ALBUTEROL
     Dates: start: 20170801
  8. NOCTAMIDE [Concomitant]
     Active Substance: LORMETAZEPAM
     Dates: start: 20170801
  9. EFFEXOR [Concomitant]
     Active Substance: VENLAFAXINE HYDROCHLORIDE
     Dates: start: 20170801
  10. ELUDRIL [Concomitant]
     Dates: start: 20170801
  11. TOPLEXIL [Concomitant]
     Active Substance: UNSPECIFIED INGREDIENT
     Dates: start: 20170925
  12. HELICIDINE [Concomitant]
     Active Substance: ESCARGOT
     Dates: start: 20170915
  13. ZYMAD [Concomitant]
     Active Substance: CHOLECALCIFEROL
     Dates: start: 20170801
  14. OTIPAX [Concomitant]
     Dates: start: 20170905
  15. BIOCALYPTOL [Concomitant]
     Dates: start: 20170801
  16. NOVOTHYROX [Suspect]
     Active Substance: LEVOTHYROXINE SODIUM
  17. SEPTEAL [Concomitant]
     Dates: start: 20170915
  18. RHINOCORT [Concomitant]
     Active Substance: BUDESONIDE
     Dates: start: 20170801
  19. SPIFEN [Concomitant]
     Active Substance: IBUPROFEN
     Dates: start: 20170801
  20. GAVISCON [Concomitant]
     Active Substance: ALUMINUM HYDROXIDE\MAGNESIUM CARBONATE
     Dates: start: 20170905
  21. INEXIUM [Concomitant]
     Active Substance: ESOMEPRAZOLE
     Dates: end: 20170801
  22. DOLIPRANE [Concomitant]
     Active Substance: ACETAMINOPHEN
     Dates: start: 20170925
  23. VOGALENE [Concomitant]
     Active Substance: METOPIMAZINE
     Dates: start: 20170925
  24. SERESTA [Concomitant]
     Active Substance: OXAZEPAM
     Dates: start: 20170801

REACTIONS (34)
  - Bone pain [None]
  - Gastrointestinal motility disorder [None]
  - Weight decreased [None]
  - Headache [Not Recovered/Not Resolved]
  - Drug intolerance [None]
  - Gastrointestinal disorder [None]
  - Pelvic pain [None]
  - Malaise [None]
  - Diarrhoea [Not Recovered/Not Resolved]
  - Depression [Not Recovered/Not Resolved]
  - Anxiety [None]
  - Nausea [Not Recovered/Not Resolved]
  - Menstrual disorder [None]
  - Musculoskeletal pain [None]
  - Vulvovaginal pain [None]
  - Metrorrhagia [None]
  - Vertigo [Not Recovered/Not Resolved]
  - Dry mouth [None]
  - Migraine with aura [None]
  - Thyroxine decreased [None]
  - Mood altered [None]
  - Abdominal pain [Not Recovered/Not Resolved]
  - Arthralgia [None]
  - Breast enlargement [None]
  - Fatigue [None]
  - Cold sweat [None]
  - Tremor [None]
  - Vomiting [Not Recovered/Not Resolved]
  - Asthenia [Not Recovered/Not Resolved]
  - Cervical polyp [None]
  - Tinnitus [None]
  - Breast pain [None]
  - Insomnia [None]
  - Blood thyroid stimulating hormone decreased [None]

NARRATIVE: CASE EVENT DATE: 2017
